FAERS Safety Report 12722130 (Version 2)
Quarter: 2016Q3

REPORT INFORMATION
  Report Type: Report from Study
  Country: US (occurrence: US)
  Receive Date: 20160907
  Receipt Date: 20160912
  Transmission Date: 20161109
  Serious: Yes (Hospitalization)
  Sender: FDA-Public Use
  Company Number: US-ABBVIE-16K-163-1713379-00

PATIENT
  Age: 41 Year
  Sex: Female

DRUGS (1)
  1. HUMIRA [Suspect]
     Active Substance: ADALIMUMAB
     Indication: RHEUMATOID ARTHRITIS
     Route: 058
     Dates: end: 201606

REACTIONS (10)
  - Injection site extravasation [Unknown]
  - Erythema [Unknown]
  - Injection site bruising [Unknown]
  - Mental disorder [Unknown]
  - Rash pustular [Unknown]
  - Rash erythematous [Unknown]
  - Injection site pain [Unknown]
  - Fungal skin infection [Unknown]
  - Skin irritation [Unknown]
  - Purulent discharge [Unknown]

NARRATIVE: CASE EVENT DATE: 2016
